FAERS Safety Report 5968169-5 (Version None)
Quarter: 2008Q4

REPORT INFORMATION
  Report Type: 
  Country: None (occurrence: None)
  Receive Date: 20081119
  Receipt Date: 20081110
  Transmission Date: 20090506
  Serious: Yes (Hospitalization)
  Sender: FDA-Public Use
  Company Number: 200814312

PATIENT
  Age: 67 Year
  Sex: Male
  Weight: 95 kg

DRUGS (2)
  1. PRIVIGEN [Suspect]
     Indication: ACQUIRED IMMUNODEFICIENCY SYNDROME
     Dosage: 10 G DAILY IV
     Route: 042
     Dates: start: 20081023, end: 20081023
  2. AUGMENTAN /00756801/ [Concomitant]

REACTIONS (2)
  - PLEURAL EFFUSION [None]
  - SPLENOMEGALY [None]
